FAERS Safety Report 10175446 (Version 1)
Quarter: 2014Q2

REPORT INFORMATION
  Report Type: Spontaneous
  Country: JP (occurrence: JP)
  Receive Date: 20140515
  Receipt Date: 20140515
  Transmission Date: 20141212
  Serious: Yes (Other)
  Sender: FDA-Public Use
  Company Number: PHHY2014JP058600

PATIENT
  Sex: 0

DRUGS (2)
  1. NEORAL [Suspect]
     Indication: LIVER TRANSPLANT
     Route: 048
  2. TELAVIC [Suspect]
     Dosage: 2250 MG, DAILY
     Route: 048

REACTIONS (2)
  - Skin disorder [Recovered/Resolved]
  - Leukopenia [Recovered/Resolved]
